FAERS Safety Report 5181048-9 (Version None)
Quarter: 2006Q4

REPORT INFORMATION
  Report Type: 
  Country: None (occurrence: None)
  Receive Date: 20061215
  Receipt Date: 20061215
  Transmission Date: 20070319
  Serious: Yes (Hospitalization)
  Sender: FDA-Public Use
  Company Number: None

PATIENT
  Sex: Female
  Weight: 59.1037 kg

DRUGS (2)
  1. TOPOTECAN 3 MG/M2 [Suspect]
     Indication: BREAST CANCER
     Dosage: 3MG/M2  D 1, 8, 15 Q28 IV
     Route: 042
     Dates: start: 20061212
  2. PS-341  1.3MG/M2 [Suspect]
     Indication: BREAST CANCER
     Dosage: 1.3MG/M2 D 1, 8, 15 Q28 IV
     Route: 042
     Dates: start: 20061212

REACTIONS (6)
  - ACUTE CORONARY SYNDROME [None]
  - FACIAL PALSY [None]
  - FALL [None]
  - PNEUMONIA [None]
  - TRANSIENT ISCHAEMIC ATTACK [None]
  - URINARY TRACT INFECTION [None]
